FAERS Safety Report 7769342-6 (Version None)
Quarter: 2011Q3

REPORT INFORMATION
  Report Type: 
  Country: None (occurrence: None)
  Receive Date: 20110922
  Receipt Date: 20110916
  Transmission Date: 20111222
  Serious: Yes (Hospitalization)
  Sender: FDA-Public Use
  Company Number: SE-PFIZER INC-2011219445

PATIENT
  Age: 79 Year
  Sex: Male

DRUGS (8)
  1. IBUPROFEN [Interacting]
     Dosage: UNK
     Route: 048
     Dates: start: 20110718, end: 20110722
  2. CHLOROMYCETIN [Suspect]
     Indication: EYE INJURY
     Dosage: 1 %, UNK
     Route: 046
     Dates: start: 20110718, end: 20110725
  3. SIMVASTATIN [Concomitant]
  4. METOPROLOL [Concomitant]
  5. WARFARIN SODIUM [Interacting]
     Indication: ATRIAL FIBRILLATION
     Dosage: UNK
  6. RAMIPRIL [Concomitant]
  7. BENSYLPENICILLIN [Concomitant]
  8. ALVEDON [Concomitant]

REACTIONS (1)
  - GASTROINTESTINAL HAEMORRHAGE [None]
